FAERS Safety Report 5629541-6 (Version None)
Quarter: 2008Q1

REPORT INFORMATION
  Report Type: 
  Country: None (occurrence: None)
  Receive Date: 20080218
  Receipt Date: 20080207
  Transmission Date: 20080703
  Serious: Yes (Other)
  Sender: FDA-Public Use
  Company Number: US-ROCHE-546036

PATIENT
  Age: 62 Year
  Sex: Female

DRUGS (6)
  1. BONIVA [Suspect]
     Indication: OSTEOPOROSIS
     Route: 048
     Dates: start: 20070201, end: 20080107
  2. 1 CONCOMITANT DRUG [Concomitant]
     Dosage: DRUG:INHALERS
  3. PROZAC [Concomitant]
  4. DIGOXIN [Concomitant]
  5. COUMADIN [Concomitant]
  6. UNSPECIFIED MEDICATIONS [Concomitant]
     Dosage: DRUG: A COUPLE OF HEART MEDICATIONS AND MEDICINES FOR PAIN CONTROL.

REACTIONS (2)
  - LUNG NEOPLASM MALIGNANT [None]
  - RADIATION INJURY [None]
